FAERS Safety Report 13448302 (Version 1)
Quarter: 2017Q2

REPORT INFORMATION
  Report Type: Spontaneous
  Country: GB (occurrence: GB)
  Receive Date: 20170417
  Receipt Date: 20170417
  Transmission Date: 20170830
  Serious: Yes (Life-Threatening)
  Sender: FDA-Public Use
  Company Number: GB-SA-2017SA067343

PATIENT
  Age: 44 Year
  Sex: Female

DRUGS (2)
  1. ALEMTUZUMAB [Suspect]
     Active Substance: ALEMTUZUMAB
     Indication: MULTIPLE SCLEROSIS
     Dosage: FIRST COURSE 12MG/DAY FOR 5 DAYS. SECOND COURSE 12MG/DAY FOR 3 DAYS.
     Route: 042
     Dates: start: 20150301
  2. ALEMTUZUMAB [Suspect]
     Active Substance: ALEMTUZUMAB
     Indication: MULTIPLE SCLEROSIS
     Dosage: FIRST COURSE 12MG/DAY FOR 5 DAYS. SECOND COURSE 12MG/DAY FOR 3 DAYS.
     Route: 042
     Dates: end: 20160701

REACTIONS (2)
  - Haemoglobin decreased [Recovering/Resolving]
  - Autoimmune haemolytic anaemia [Recovering/Resolving]

NARRATIVE: CASE EVENT DATE: 20170316
